FAERS Safety Report 5310761-5 (Version None)
Quarter: 2007Q2

REPORT INFORMATION
  Report Type: 
  Country: None (occurrence: None)
  Receive Date: 20070428
  Receipt Date: 20070417
  Transmission Date: 20071010
  Serious: Yes (Other)
  Sender: FDA-Public Use
  Company Number: FR-PFIZER INC-2007026537

PATIENT
  Sex: Female
  Weight: 54 kg

DRUGS (8)
  1. CHAMPIX [Suspect]
     Indication: EX-SMOKER
     Route: 048
     Dates: start: 20070225, end: 20070319
  2. ALL OTHER THERAPEUTIC PRODUCTS [Concomitant]
  3. KETOPROFEN [Concomitant]
     Route: 048
  4. OMEPRAZOLE [Concomitant]
     Route: 048
     Dates: start: 20020101
  5. PARACETAMOL [Concomitant]
     Route: 048
     Dates: start: 20020101
  6. CODEINE PHOSPHATE HEMIHYDRATE [Concomitant]
     Route: 048
     Dates: start: 20020101
  7. TETRAZEPAM [Concomitant]
     Route: 048
     Dates: start: 20020101
  8. NAFTIDROFURYL OXALATE [Concomitant]
     Route: 048
     Dates: start: 20050101, end: 20070328

REACTIONS (8)
  - AUTONOMIC NERVOUS SYSTEM IMBALANCE [None]
  - DYSGEUSIA [None]
  - FATIGUE [None]
  - HEPATIC FUNCTION ABNORMAL [None]
  - INSOMNIA [None]
  - JAUNDICE [None]
  - LIVEDO RETICULARIS [None]
  - SHOCK [None]
